FAERS Safety Report 5369063-3 (Version None)
Quarter: 2007Q2

REPORT INFORMATION
  Report Type: 
  Country: None (occurrence: None)
  Receive Date: 20070625
  Receipt Date: 20070110
  Transmission Date: 20071010
  Serious: No
  Sender: FDA-Public Use
  Company Number: US-ASTRAZENECA-2007UW00514

PATIENT
  Age: 53 Year
  Sex: Male
  Weight: 79.4 kg

DRUGS (5)
  1. CRESTOR [Suspect]
     Indication: BLOOD CHOLESTEROL
     Route: 048
     Dates: start: 20061101
  2. TOPROL-XL [Concomitant]
  3. MOBIC [Concomitant]
  4. HYDROCHLORAT [Concomitant]
  5. FLOMAX [Concomitant]

REACTIONS (2)
  - BLOOD BILIRUBIN INCREASED [None]
  - HEPATITIS C [None]
